FAERS Safety Report 7743740-9 (Version None)
Quarter: 2011Q3

REPORT INFORMATION
  Report Type: 
  Country: None (occurrence: None)
  Receive Date: 20110906
  Receipt Date: 20110824
  Transmission Date: 20111222
  Serious: Yes (Hospitalization, Other)
  Sender: FDA-Public Use
  Company Number: 2011SP004878

PATIENT
  Age: 42 Year
  Sex: Female
  Weight: 86.1834 kg

DRUGS (2)
  1. NUVARING [Suspect]
     Indication: CONTRACEPTION
     Dosage: 1 DF; QM;    1 DF; QM;
     Dates: start: 20060901, end: 20080201
  2. NUVARING [Suspect]
     Indication: CONTRACEPTION
     Dosage: 1 DF; QM;    1 DF; QM;
     Dates: start: 20080501, end: 20090801

REACTIONS (11)
  - UTERINE LEIOMYOMA [None]
  - HYPERCOAGULATION [None]
  - DYSFUNCTIONAL UTERINE BLEEDING [None]
  - GROIN PAIN [None]
  - DEEP VEIN THROMBOSIS [None]
  - VENOUS INSUFFICIENCY [None]
  - OEDEMA PERIPHERAL [None]
  - EMOTIONAL DISORDER [None]
  - CERVICAL DYSPLASIA [None]
  - IRON DEFICIENCY ANAEMIA [None]
  - MENTAL DISORDER [None]
